FAERS Safety Report 24701555 (Version 1)
Quarter: 2024Q4

REPORT INFORMATION
  Report Type: Spontaneous
  Country: US (occurrence: US)
  Receive Date: 20241205
  Receipt Date: 20241205
  Transmission Date: 20250115
  Serious: Yes (Other)
  Sender: FENNEC PHARMACEUTICALS
  Company Number: US-FENNEC PHARMACEUTICALS, INC.-2024FEN00065

PATIENT
  Age: 58 Year
  Sex: Male

DRUGS (1)
  1. SODIUM THIOSULFATE [Suspect]
     Active Substance: SODIUM THIOSULFATE
     Indication: Calciphylaxis
     Dosage: 50 G

REACTIONS (2)
  - Metabolic acidosis [Recovered/Resolved]
  - Off label use [Recovered/Resolved]
